FAERS Safety Report 10348786 (Version 2)
Quarter: 2014Q3

REPORT INFORMATION
  Report Type: Spontaneous
  Country: US (occurrence: US)
  Receive Date: 20140729
  Receipt Date: 20140822
  Transmission Date: 20150326
  Serious: No
  Sender: FDA-Public Use
  Company Number: US-009507513-1407USA006644

PATIENT
  Age: 77 Year
  Sex: Female
  Weight: 102.4 kg

DRUGS (4)
  1. VITAMINS (UNSPECIFIED) [Concomitant]
     Active Substance: VITAMINS
     Indication: PRODUCT USED FOR UNKNOWN INDICATION
     Dosage: UNK, UNKNOWN
  2. CLARITIN [Suspect]
     Active Substance: LORATADINE
     Indication: RHINORRHOEA
  3. CLARITIN [Suspect]
     Active Substance: LORATADINE
     Indication: OTORRHOEA
     Dosage: 10 MG, ONCE
     Route: 048
     Dates: start: 20140620
  4. INSULIN [Concomitant]
     Active Substance: INSULIN NOS
     Indication: DIABETES MELLITUS
     Dosage: UNK, UNKNOWN

REACTIONS (5)
  - Off label use [Unknown]
  - Hypoaesthesia [Unknown]
  - Drug prescribing error [Unknown]
  - Drug ineffective [Unknown]
  - Insomnia [Unknown]

NARRATIVE: CASE EVENT DATE: 2014
